FAERS Safety Report 8509304-4 (Version None)
Quarter: 2012Q3

REPORT INFORMATION
  Report Type: 
  Country: None (occurrence: None)
  Receive Date: 20120713
  Receipt Date: 20120709
  Transmission Date: 20120928
  Serious: Yes (Hospitalization)
  Sender: FDA-Public Use
  Company Number: BG-ROCHE-1086209

PATIENT
  Sex: Female
  Weight: 55 kg

DRUGS (4)
  1. PEGASYS [Suspect]
  2. PEGASYS [Suspect]
     Indication: HEPATITIS C
     Route: 058
     Dates: start: 20120523
  3. COPEGUS [Suspect]
     Indication: HEPATITIS C
     Route: 048
     Dates: start: 20120523
  4. COPEGUS [Suspect]

REACTIONS (4)
  - ASTHENIA [None]
  - HYPOTONIA [None]
  - ANAEMIA [None]
  - TACHYCARDIA [None]
